FAERS Safety Report 5581325-3 (Version None)
Quarter: 2008Q1

REPORT INFORMATION
  Report Type: 
  Country: None (occurrence: None)
  Receive Date: 20080104
  Receipt Date: 20071228
  Transmission Date: 20080703
  Serious: Yes (Hospitalization)
  Sender: FDA-Public Use
  Company Number: PHBS2007JP17837

PATIENT
  Age: 1 Day
  Sex: Male
  Weight: 1.81 kg

DRUGS (3)
  1. TRANDATE [Concomitant]
     Route: 064
  2. INSULIN [Concomitant]
     Route: 064
  3. REGITINE [Suspect]
     Route: 064

REACTIONS (2)
  - DRUG EXPOSURE DURING PREGNANCY [None]
  - PREMATURE BABY [None]
